FAERS Safety Report 6425697-6 (Version None)
Quarter: 2009Q4

REPORT INFORMATION
  Report Type: 
  Country: None (occurrence: None)
  Receive Date: 20091103
  Receipt Date: 20091021
  Transmission Date: 20100525
  Serious: Yes (Hospitalization)
  Sender: FDA-Public Use
  Company Number: PHHY2009FR45950

PATIENT
  Sex: Male

DRUGS (11)
  1. CGP 57148B T35717+ [Suspect]
     Dosage: 400 MG/DAY
     Dates: start: 20050527
  2. OROCAL D3 [Concomitant]
     Dosage: 2 DF/DAY
  3. PLAVIX [Concomitant]
     Dosage: 75 MG, QD
  4. CORDARONE [Concomitant]
     Dosage: 1 DF/DAY
  5. CARDENSIEL [Concomitant]
     Dosage: 205 MG/DAY
  6. COZAAR [Concomitant]
     Dosage: 50 MG, QD
  7. DIFFU K [Concomitant]
     Dosage: 1 DF, QD
  8. TAHOR [Concomitant]
     Dosage: 10 MG/DAY
  9. ESOMEPRAZOLE MAGNESIUM [Concomitant]
     Dosage: 40 MG, QD
  10. ERYTHROPOIETIN HUMAN [Concomitant]
     Dosage: UNK
     Dates: end: 20090707
  11. ALLOPURINOL [Concomitant]
     Dosage: 200 MG/DAY

REACTIONS (7)
  - ASTHENIA [None]
  - FALL [None]
  - FRACTURE [None]
  - HYPOCALCAEMIA [None]
  - MALAISE [None]
  - NORMOCHROMIC NORMOCYTIC ANAEMIA [None]
  - SEPSIS [None]
